FAERS Safety Report 4492911-6 (Version None)
Quarter: 2004Q4

REPORT INFORMATION
  Report Type: 
  Country: None (occurrence: None)
  Receive Date: 20041104
  Receipt Date: 20030605
  Transmission Date: 20050328
  Serious: Yes (Hospitalization, Other)
  Sender: FDA-Public Use
  Company Number: US-MERCK-0306USA00700

PATIENT
  Age: 66 Year
  Sex: Female

DRUGS (4)
  1. VIOXX [Suspect]
     Route: 048
     Dates: start: 20010101
  2. ASPIRIN [Concomitant]
     Route: 065
  3. MONOPRIL [Concomitant]
     Indication: HYPERTENSION
     Route: 065
  4. HYDROCHLOROTHIAZIDE [Concomitant]
     Indication: HYPERTENSION
     Route: 065

REACTIONS (21)
  - ACUTE MYOCARDIAL INFARCTION [None]
  - ANAEMIA [None]
  - ANGINA PECTORIS [None]
  - BACK PAIN [None]
  - BARRETT'S OESOPHAGUS [None]
  - BLOOD PRESSURE INCREASED [None]
  - CHEST PAIN [None]
  - COLONIC POLYP [None]
  - CONSTIPATION [None]
  - CONVULSION [None]
  - CORONARY ARTERY DISEASE [None]
  - CORONARY ARTERY RESTENOSIS [None]
  - DIVERTICULUM INTESTINAL [None]
  - EROSIVE OESOPHAGITIS [None]
  - HAEMORRHOIDS [None]
  - HIATUS HERNIA [None]
  - HYPERLIPIDAEMIA [None]
  - HYPOAESTHESIA [None]
  - MYOCARDIAL ISCHAEMIA [None]
  - OSTEOARTHRITIS [None]
  - RASH ERYTHEMATOUS [None]
